FAERS Safety Report 21997079 (Version 1)
Quarter: 2023Q1

REPORT INFORMATION
  Report Type: Report from Study
  Country: IN (occurrence: IN)
  Receive Date: 20230215
  Receipt Date: 20230215
  Transmission Date: 20230418
  Serious: Yes (Other)
  Sender: FDA-Public Use
  Company Number: IN-002147023-NVSC2023IN031812

PATIENT
  Age: 66 Year
  Sex: Female

DRUGS (2)
  1. CERITINIB [Suspect]
     Active Substance: CERITINIB
     Indication: Non-small cell lung cancer
     Dosage: 450 MG, QD
     Route: 048
     Dates: start: 20220302
  2. CERITINIB [Suspect]
     Active Substance: CERITINIB
     Dosage: 300 MG, QD
     Route: 065
     Dates: start: 20221212

REACTIONS (8)
  - Bone pain [Unknown]
  - Chest pain [Unknown]
  - Urinary incontinence [Unknown]
  - Tumour marker decreased [Unknown]
  - Asthenia [Unknown]
  - Decreased appetite [Unknown]
  - Cough [Unknown]
  - Product use issue [Not Recovered/Not Resolved]

NARRATIVE: CASE EVENT DATE: 20220523
